FAERS Safety Report 4279906-2 (Version None)
Quarter: 2004Q1

REPORT INFORMATION
  Report Type: 
  Country: None (occurrence: None)
  Receive Date: 20040122
  Receipt Date: 20040112
  Transmission Date: 20041129
  Serious: Yes (Hospitalization)
  Sender: FDA-Public Use
  Company Number: DE-JNJFOC-20040102009

PATIENT
  Age: 36 Year
  Sex: Male
  Weight: 85 kg

DRUGS (3)
  1. REMICADE [Suspect]
     Indication: ANKYLOSING SPONDYLITIS
     Dosage: 300 MG, 1 IN 6 WEEK, INTRAVENOUS
     Route: 042
     Dates: start: 20020225, end: 20031105
  2. PREDNISOLONE [Concomitant]
  3. LEFLUNOMIDE (LEFLUNOMIDE) [Concomitant]

REACTIONS (2)
  - FUNGAL SEPSIS [None]
  - PNEUMONIA [None]
